FAERS Safety Report 11202471 (Version 2)
Quarter: 2015Q2

REPORT INFORMATION
  Report Type: Report from Study
  Country: US (occurrence: US)
  Receive Date: 20150619
  Receipt Date: 20150623
  Transmission Date: 20150821
  Serious: Yes (Hospitalization)
  Sender: FDA-Public Use
  Company Number: US-SA-2015SA085671

PATIENT
  Sex: Male

DRUGS (1)
  1. LUMIZYME [Suspect]
     Active Substance: ALGLUCOSIDASE ALFA
     Dosage: FREQUENCY: Q1
     Route: 041

REACTIONS (4)
  - Viral infection [Recovering/Resolving]
  - White blood cell count decreased [Recovering/Resolving]
  - Heart rate increased [Recovering/Resolving]
  - Pyrexia [Recovering/Resolving]
